FAERS Safety Report 5595071-3 (Version None)
Quarter: 2008Q1

REPORT INFORMATION
  Report Type: 
  Country: None (occurrence: None)
  Receive Date: 20080117
  Receipt Date: 20080109
  Transmission Date: 20080703
  Serious: Yes (Other)
  Sender: FDA-Public Use
  Company Number: JP-ROCHE-540789

PATIENT
  Age: 14 Year
  Sex: Male

DRUGS (2)
  1. TAMIFLU [Suspect]
     Indication: PYREXIA
     Route: 065
  2. ACETAMINOPHEN [Concomitant]
     Indication: PYREXIA

REACTIONS (1)
  - ENCEPHALOPATHY [None]
